FAERS Safety Report 7642924-8 (Version None)
Quarter: 2011Q3

REPORT INFORMATION
  Report Type: 
  Country: None (occurrence: None)
  Receive Date: 20110728
  Receipt Date: 20110426
  Transmission Date: 20111222
  Serious: No
  Sender: FDA-Public Use
  Company Number: US-BAUSCH-2011BL002721

PATIENT
  Age: 76 Year
  Sex: Female

DRUGS (2)
  1. TOBRAMYCIN AND DEXAMETHASONE [Suspect]
     Indication: CONJUNCTIVITIS
     Route: 047
     Dates: start: 20110418, end: 20110420
  2. MULTI-VITAMINS [Concomitant]

REACTIONS (3)
  - ERYTHEMA OF EYELID [None]
  - DRUG HYPERSENSITIVITY [None]
  - EYELID EXFOLIATION [None]
